FAERS Safety Report 24841172 (Version 2)
Quarter: 2025Q1

REPORT INFORMATION
  Report Type: Spontaneous
  Country: JP (occurrence: JP)
  Receive Date: 20250114
  Receipt Date: 20250210
  Transmission Date: 20250408
  Serious: Yes (Hospitalization)
  Sender: ELI LILLY AND COMPANY
  Company Number: JP-ELI_LILLY_AND_COMPANY-JP202412016701

PATIENT

DRUGS (2)
  1. VERZENIO [Suspect]
     Active Substance: ABEMACICLIB
     Indication: Drug therapy
     Route: 048
  2. FEMARA [Concomitant]
     Active Substance: LETROZOLE
     Indication: Drug therapy

REACTIONS (2)
  - Blood creatine phosphokinase increased [Unknown]
  - Hypokalaemia [Unknown]
